FAERS Safety Report 8183394-3 (Version None)
Quarter: 2012Q1

REPORT INFORMATION
  Report Type: 
  Country: None (occurrence: None)
  Receive Date: 20120305
  Receipt Date: 20120301
  Transmission Date: 20120608
  Serious: Yes (Hospitalization, Disabling)
  Sender: FDA-Public Use
  Company Number: PL-SANOFI-AVENTIS-2011SA003771

PATIENT
  Age: 43 Year
  Sex: Male

DRUGS (8)
  1. AMLODIPINE [Concomitant]
     Dates: start: 20081117
  2. PLACEBO [Suspect]
     Route: 042
     Dates: start: 20100113, end: 20100113
  3. DOCETAXEL [Suspect]
     Indication: PROSTATE CANCER METASTATIC
     Route: 042
     Dates: start: 20080805, end: 20080805
  4. RANITIDINE [Concomitant]
     Dates: start: 20080804
  5. DOCETAXEL [Suspect]
     Route: 042
     Dates: start: 20091218, end: 20091218
  6. PREDNISONE TAB [Suspect]
     Indication: PROSTATE CANCER METASTATIC
     Dates: start: 20080805, end: 20100113
  7. ZOLADEX [Concomitant]
     Dates: start: 20070910
  8. PLACEBO [Suspect]
     Indication: PROSTATE CANCER METASTATIC
     Route: 042
     Dates: start: 20080805, end: 20080805

REACTIONS (1)
  - PARAPLEGIA [None]
